FAERS Safety Report 9517072 (Version 1)
Quarter: 2013Q1

REPORT INFORMATION
  Report Type: Spontaneous
  Country: US (occurrence: None)
  Receive Date: 20130305
  Receipt Date: 20130305
  Transmission Date: 20140127
  Serious: Yes (Other)
  Sender: FDA-Public Use
  Company Number: 163-21880-12113513

PATIENT
  Age: 81 Year
  Sex: Male
  Weight: 76.3 kg

DRUGS (8)
  1. REVLIMID [Suspect]
     Indication: MYELODYSPLASTIC SYNDROME
     Route: 048
     Dates: start: 20120119
  2. SIMVASTATIN [Concomitant]
  3. FOLIC ACID [Concomitant]
  4. FISH OIL [Concomitant]
  5. XARELTO (RIVAROXABAN) [Concomitant]
  6. PROCRIT [Concomitant]
  7. PREDNISONE [Concomitant]
  8. WARFARIN [Concomitant]

REACTIONS (2)
  - Pruritus [None]
  - Pain [None]
